FAERS Safety Report 15372165 (Version 1)
Quarter: 2018Q3

REPORT INFORMATION
  Report Type: Spontaneous
  Country: US (occurrence: US)
  Receive Date: 20180905
  Receipt Date: 20180905
  Transmission Date: 20181010
  Serious: Yes (Hospitalization, Other)
  Sender: FDA-Public Use
  Company Number: None

PATIENT
  Age: 40 Year
  Sex: Female
  Weight: 69.85 kg

DRUGS (1)
  1. MIRENA [Suspect]
     Active Substance: LEVONORGESTREL

REACTIONS (6)
  - Fallopian tube perforation [None]
  - Abortion [None]
  - Hysterectomy [None]
  - Emotional distress [None]
  - Pregnancy with contraceptive device [None]
  - Pain [None]

NARRATIVE: CASE EVENT DATE: 20101210
